FAERS Safety Report 14221510 (Version 8)
Quarter: 2018Q2

REPORT INFORMATION
  Report Type: Spontaneous
  Country: US (occurrence: US)
  Receive Date: 20171124
  Receipt Date: 20180625
  Transmission Date: 20180711
  Serious: Yes (Hospitalization, Other)
  Sender: FDA-Public Use
  Company Number: US-PFIZER INC-2017505877

PATIENT
  Age: 70 Year
  Sex: Female
  Weight: 80.74 kg

DRUGS (14)
  1. TIMOLOL. [Concomitant]
     Active Substance: TIMOLOL
     Dosage: 0.5 %, 2X/DAY
  2. DULERA [Concomitant]
     Active Substance: FORMOTEROL FUMARATE DIHYDRATE\MOMETASONE FUROATE
     Dosage: UNK, 2X/DAY (FORMOTEROL FUMARATE-5MCG]/[MOMETASONE FUROATE-100MCG)
     Route: 055
  3. AMLODIPINE BESILATE [Concomitant]
     Active Substance: AMLODIPINE BESYLATE
     Dosage: 5 MG, DAILY
  4. XELJANZ XR [Suspect]
     Active Substance: TOFACITINIB CITRATE
     Dosage: 11 MG, UNK
     Route: 048
     Dates: start: 201712, end: 201802
  5. AMITRIPTYLINE [Concomitant]
     Active Substance: AMITRIPTYLINE
     Dosage: 50 MG, 1X/DAY (AT PM)
  6. PSEUDOEPHEDRINE HCL [Concomitant]
     Active Substance: PSEUDOEPHEDRINE HYDROCHLORIDE
     Dosage: 30 MG, AS NEEDED (PRN)
  7. XELJANZ XR [Suspect]
     Active Substance: TOFACITINIB CITRATE
     Dosage: UNK
     Dates: start: 20180416
  8. TRAMADOL. [Concomitant]
     Active Substance: TRAMADOL
     Dosage: 50 MG, AS NEEDED
  9. XELJANZ XR [Suspect]
     Active Substance: TOFACITINIB CITRATE
     Dosage: UNK, DAILY (ONE DAILY PO)
     Route: 048
     Dates: start: 201709
  10. XELJANZ XR [Suspect]
     Active Substance: TOFACITINIB CITRATE
     Dosage: UNK, DAILY (ONE DAILY PO)
     Route: 048
     Dates: start: 20180122
  11. METHOCARBAMOL. [Concomitant]
     Active Substance: METHOCARBAMOL
     Dosage: 500 MG, AS NEEDED (PRN)
  12. XELJANZ XR [Suspect]
     Active Substance: TOFACITINIB CITRATE
     Indication: RHEUMATOID ARTHRITIS
     Dosage: 11 MG, 1X/DAY
     Route: 048
     Dates: start: 201708, end: 20171213
  13. OMEPRAZOLE. [Concomitant]
     Active Substance: OMEPRAZOLE
     Dosage: 20 MG, 2X/DAY
  14. FEXOFENADINE [Concomitant]
     Active Substance: FEXOFENADINE\FEXOFENADINE HYDROCHLORIDE
     Dosage: 180 MG, DAILY

REACTIONS (6)
  - Wrist fracture [Recovered/Resolved]
  - Diverticulitis [Recovered/Resolved]
  - Sinusitis [Recovered/Resolved]
  - Fall [Recovered/Resolved]
  - Radius fracture [Recovered/Resolved]
  - Injury [Unknown]

NARRATIVE: CASE EVENT DATE: 201712
